FAERS Safety Report 4501982-X (Version None)
Quarter: 2004Q4

REPORT INFORMATION
  Report Type: 
  Country: None (occurrence: None)
  Receive Date: 20041115
  Receipt Date: 20041115
  Transmission Date: 20050328
  Serious: Yes (Other)
  Sender: FDA-Public Use
  Company Number: None

PATIENT
  Age: 64 Year
  Sex: Male
  Weight: 81.6475 kg

DRUGS (3)
  1. COLESTIPOL 1G UPJOHN [Suspect]
     Indication: HYPERCHOLESTEROLAEMIA
     Dosage: 1G TWICE DAILY ORAL
     Route: 048
     Dates: start: 20041001, end: 20041028
  2. NIFEDIPINE [Concomitant]
  3. LOVASTATIN [Concomitant]

REACTIONS (2)
  - PRURITUS [None]
  - RASH [None]
